FAERS Safety Report 10790885 (Version 1)
Quarter: 2015Q1

REPORT INFORMATION
  Report Type: Report from Study
  Country: CN (occurrence: CN)
  Receive Date: 20150212
  Receipt Date: 20150212
  Transmission Date: 20150721
  Serious: Yes (Death)
  Sender: FDA-Public Use
  Company Number: CN-BAXTER-2014BAX034691

PATIENT
  Sex: Male

DRUGS (1)
  1. PERITONEAL DIALYSIS SOLUTION (LACTATE- G 1.5%) [Suspect]
     Active Substance: CALCIUM CHLORIDE\DEXTROSE\MAGNESIUM CHLORIDE\SODIUM CHLORIDE\SODIUM LACTATE
     Indication: PERITONEAL DIALYSIS
     Route: 033
     Dates: end: 20140316

REACTIONS (1)
  - Cardiac failure [Fatal]
